FAERS Safety Report 24647108 (Version 2)
Quarter: 2024Q4

REPORT INFORMATION
  Report Type: Spontaneous
  Country: RU (occurrence: RU)
  Receive Date: 20241121
  Receipt Date: 20241216
  Transmission Date: 20250115
  Serious: Yes (Death, Other)
  Sender: ORGANON
  Company Number: RU-009507513-2101RUS012246

PATIENT
  Age: 62 Year
  Sex: Female

DRUGS (6)
  1. DIPROSPAN [Suspect]
     Active Substance: BETAMETHASONE DIPROPIONATE\BETAMETHASONE SODIUM PHOSPHATE
     Indication: Osteoarthritis
     Dosage: 1 ML
     Dates: start: 20191017, end: 20191017
  2. LIDOCAINE [Suspect]
     Active Substance: LIDOCAINE
     Indication: Osteoarthritis
     Dosage: 1 MILLILITER (ML)
     Dates: start: 20191017, end: 20241017
  3. ARTICAINE HYDROCHLORIDE\EPINEPHRINE HYDROCHLORIDE [Suspect]
     Active Substance: ARTICAINE HYDROCHLORIDE\EPINEPHRINE HYDROCHLORIDE
     Indication: Osteoarthritis
     Dosage: 1 ML, PARAARTICULAR
     Dates: start: 20191017, end: 20191017
  4. EPINEPHRINE [Suspect]
     Active Substance: EPINEPHRINE
     Route: 040
  5. EPINEPHRINE [Suspect]
     Active Substance: EPINEPHRINE
     Route: 040
  6. CHOLINE ALFOSCERATE [Concomitant]
     Active Substance: CHOLINE ALFOSCERATE
     Indication: Cerebral ischaemia
     Dosage: 400 MILLIGRAM, BID
     Dates: end: 20191017

REACTIONS (9)
  - Loss of consciousness [Fatal]
  - Asthenia [Fatal]
  - Visual impairment [Fatal]
  - Respiratory arrest [Fatal]
  - Cardiac arrest [Fatal]
  - Pulse absent [Fatal]
  - Anisocoria [Not Recovered/Not Resolved]
  - Product use in unapproved indication [Unknown]
  - Ataxia [Unknown]

NARRATIVE: CASE EVENT DATE: 20191017
